FAERS Safety Report 10410971 (Version 1)
Quarter: 2014Q3

REPORT INFORMATION
  Report Type: Spontaneous
  Country: FR (occurrence: FR)
  Receive Date: 20140826
  Receipt Date: 20140826
  Transmission Date: 20150326
  Serious: Yes (Death, Hospitalization, Other)
  Sender: FDA-Public Use
  Company Number: FR-PFIZER INC-2014234984

PATIENT
  Age: 84 Year
  Sex: Female

DRUGS (16)
  1. KETAMINE [Concomitant]
     Active Substance: KETAMINE
     Dosage: UNK
     Dates: start: 20140618
  2. MORPHINE [Concomitant]
     Active Substance: MORPHINE
     Dosage: UNK
     Dates: start: 20140618
  3. PRAVASTATIN [Concomitant]
     Active Substance: PRAVASTATIN\PRAVASTATIN SODIUM
     Dosage: 40 MG, DAILY
  4. CALCIPARINE [Concomitant]
     Active Substance: HEPARIN CALCIUM
     Dosage: 0.3 ML
     Dates: start: 20140618
  5. OXYGEN. [Concomitant]
     Active Substance: OXYGEN
     Dosage: UNK
     Dates: start: 20140618
  6. CELEBREX [Suspect]
     Active Substance: CELECOXIB
     Dosage: 200 MG, 2X/DAY
     Route: 048
     Dates: start: 20140620, end: 20140622
  7. KARDEGIC [Suspect]
     Active Substance: ASPIRIN LYSINE
     Dosage: 75 MG, 1X/DAY
     Route: 048
     Dates: end: 20140621
  8. COVERSYL [Concomitant]
     Active Substance: PERINDOPRIL
     Dosage: 10 MG, DAILY
  9. ACUPAN [Concomitant]
     Active Substance: NEFOPAM HYDROCHLORIDE
     Dosage: UNK
     Dates: start: 20140618
  10. TRAMADOL LP [Concomitant]
     Dosage: UNK
     Dates: start: 20140618
  11. PARACETAMOL [Concomitant]
     Active Substance: ACETAMINOPHEN
     Dosage: UNK
     Dates: start: 20140618
  12. PROFENID [Suspect]
     Active Substance: KETOPROFEN
     Dosage: 50 MG, 2X/DAY
     Route: 048
     Dates: start: 20140618, end: 20140620
  13. ZOPHREN [Concomitant]
     Active Substance: ONDANSETRON
     Indication: VOMITING
     Dosage: UNK
     Dates: start: 20140618
  14. BISOPROLOL [Concomitant]
     Active Substance: BISOPROLOL
     Dosage: 200 MG, DAILY
  15. CALCIPARINE [Concomitant]
     Active Substance: HEPARIN CALCIUM
     Dosage: 0.2 ML, 2X/DAY
     Dates: start: 20140620
  16. PERFALGAN [Concomitant]
     Active Substance: ACETAMINOPHEN

REACTIONS (7)
  - Gastric ulcer [Unknown]
  - Bundle branch block left [Unknown]
  - Gastric ulcer perforation [Fatal]
  - Peritonitis [Unknown]
  - Multi-organ failure [Unknown]
  - Respiratory distress [Unknown]
  - Pneumoperitoneum [Unknown]

NARRATIVE: CASE EVENT DATE: 20140622
